FAERS Safety Report 8766752 (Version 1)
Quarter: 2012Q4

REPORT INFORMATION
  Report Type: 
  Country: FR (occurrence: FR)
  Receive Date: 20120904
  Receipt Date: 20120904
  Transmission Date: 20130627
  Serious: Yes (Other)
  Sender: FDA-Public Use
  Company Number: FR-JNJFOC-20120900326

PATIENT
  Age: 57 Year
  Sex: Male

DRUGS (1)
  1. IXPRIM [Suspect]
     Indication: PAIN
     Dosage: 6 tablets daily
     Route: 048
     Dates: start: 201206, end: 201206

REACTIONS (2)
  - Somnolence [Recovered/Resolved]
  - Incoherent [Recovered/Resolved]
